FAERS Safety Report 19941845 (Version 1)
Quarter: 2021Q4

REPORT INFORMATION
  Report Type: Spontaneous
  Country: CN (occurrence: CN)
  Receive Date: 20211012
  Receipt Date: 20211012
  Transmission Date: 20220303
  Serious: Yes (Other)
  Sender: FDA-Public Use
  Company Number: CN-JIANGSU HENGRUI MEDICINE CO., LTD.-2120427

PATIENT
  Age: 72 Year
  Sex: Female
  Weight: 61 kg

DRUGS (2)
  1. IRINOTECAN HYDROCHLORIDE [Suspect]
     Active Substance: IRINOTECAN HYDROCHLORIDE
     Indication: Colon cancer
     Route: 041
     Dates: start: 20210928, end: 20210928
  2. DEXTROSE [Concomitant]
     Active Substance: DEXTROSE
     Route: 041
     Dates: start: 20210928, end: 20210928

REACTIONS (4)
  - Abdominal pain [Recovering/Resolving]
  - Diarrhoea [Recovering/Resolving]
  - Hyperhidrosis [Recovering/Resolving]
  - Blood pressure increased [Recovering/Resolving]

NARRATIVE: CASE EVENT DATE: 20210928
